FAERS Safety Report 10231890 (Version 2)
Quarter: 2014Q3

REPORT INFORMATION
  Report Type: Report from Study
  Country: US (occurrence: US)
  Receive Date: 20140612
  Receipt Date: 20140730
  Transmission Date: 20150326
  Serious: No
  Sender: FDA-Public Use
  Company Number: US-BIOGENIDEC-2014BI055979

PATIENT
  Age: 53 Year
  Sex: Female

DRUGS (2)
  1. AVONEX [Suspect]
     Active Substance: INTERFERON BETA-1A
     Indication: MULTIPLE SCLEROSIS
     Route: 030
     Dates: start: 20120316
  2. AVONEX [Suspect]
     Active Substance: INTERFERON BETA-1A
     Indication: MULTIPLE SCLEROSIS
     Route: 030
     Dates: start: 20081215

REACTIONS (12)
  - Temperature intolerance [Unknown]
  - Injection site pain [Unknown]
  - Arthritis [Unknown]
  - Needle issue [Unknown]
  - Influenza like illness [Unknown]
  - Fatigue [Unknown]
  - Multiple sclerosis [Unknown]
  - Gait disturbance [Unknown]
  - Coordination abnormal [Unknown]
  - Hand fracture [Recovered/Resolved]
  - Depressed mood [Unknown]
  - Injection site haemorrhage [Unknown]

NARRATIVE: CASE EVENT DATE: 201405
